FAERS Safety Report 4615546-0 (Version None)
Quarter: 2005Q2

REPORT INFORMATION
  Report Type: 
  Country: None (occurrence: None)
  Receive Date: 20050311
  Receipt Date: 20041221
  Transmission Date: 20051028
  Serious: No
  Sender: FDA-Public Use
  Company Number: 2004-BP-14253BP

PATIENT
  Age: 77 Year
  Sex: Female
  Weight: 63.6 kg

DRUGS (13)
  1. SPIRIVA [Suspect]
     Indication: CHRONIC OBSTRUCTIVE PULMONARY DISEASE
     Dosage: 18 MCG (18 MCG, 18 IN 1 D), IH
     Route: 055
     Dates: start: 20040908, end: 20040926
  2. LUMIGEN [Concomitant]
  3. FLONASE [Concomitant]
  4. BUDESONIDE [Concomitant]
  5. ALBUTEROL AND ISOPROP NEBULIZER [Concomitant]
  6. CARDIZEM [Concomitant]
  7. TENORMIN [Concomitant]
  8. LEVOXYL [Concomitant]
  9. ZOCOR [Concomitant]
  10. LASIX [Concomitant]
  11. KLOR-CON [Concomitant]
  12. ALBUTEROL [Concomitant]
  13. FLOVENT [Concomitant]

REACTIONS (1)
  - DYSPNOEA EXACERBATED [None]
